FAERS Safety Report 9186134 (Version 1)
Quarter: 2013Q1

REPORT INFORMATION
  Report Type: Spontaneous
  Country: CA (occurrence: None)
  Receive Date: 20130129
  Receipt Date: 20130129
  Transmission Date: 20140127
  Serious: Yes (Hospitalization)
  Sender: FDA-Public Use
  Company Number: 144432

PATIENT
  Age: 57 Year
  Sex: Female

DRUGS (1)
  1. DILTIAZEM HCL INJ. 25MG/5ML - BEDFORD LABS, INC. [Suspect]
     Indication: SUICIDE ATTEMPT

REACTIONS (2)
  - Intentional overdose [None]
  - Cardiogenic shock [None]
